FAERS Safety Report 6755776-5 (Version None)
Quarter: 2010Q2

REPORT INFORMATION
  Report Type: 
  Country: None (occurrence: None)
  Receive Date: 20100604
  Receipt Date: 20100527
  Transmission Date: 20101027
  Serious: Yes (Other)
  Sender: FDA-Public Use
  Company Number: US-ELI_LILLY_AND_COMPANY-US201004002819

PATIENT
  Sex: Male

DRUGS (4)
  1. HUMALOG MIX 75/25 [Suspect]
     Indication: DIABETES MELLITUS
     Dosage: UNK, AS NEEDED
     Dates: start: 20080101
  2. HYDRALAZINE HCL [Concomitant]
     Dosage: 50 MG, 3/D
     Dates: end: 20100314
  3. HYDRALAZINE HCL [Concomitant]
     Dosage: 75 MEQ, 3/D
     Dates: start: 20100314
  4. SYMLIN [Concomitant]
     Dosage: 120 MCI, UNKNOWN

REACTIONS (4)
  - ACUTE CORONARY SYNDROME [None]
  - BLOOD GLUCOSE INCREASED [None]
  - DRUG INEFFECTIVE [None]
  - PRODUCT QUALITY ISSUE [None]
